FAERS Safety Report 10925989 (Version 2)
Quarter: 2015Q2

REPORT INFORMATION
  Report Type: Spontaneous
  Country: JP (occurrence: JP)
  Receive Date: 20150318
  Receipt Date: 20150401
  Transmission Date: 20150821
  Serious: Yes (Other)
  Sender: FDA-Public Use
  Company Number: JP-GLAXOSMITHKLINE-JP2015JPN025370

PATIENT
  Age: 16 Year
  Sex: Female

DRUGS (4)
  1. BIO-THREE [Concomitant]
     Active Substance: HERBALS
     Dosage: UNK
  2. ALLERMIST [Suspect]
     Active Substance: FLUTICASONE FUROATE
     Indication: RHINITIS
     Dosage: UNK
     Route: 045
     Dates: start: 20150124, end: 20150221
  3. DEPAKENE [Concomitant]
     Active Substance: VALPROIC ACID
     Dosage: UNK
  4. KEPPRA [Concomitant]
     Active Substance: LEVETIRACETAM
     Dosage: UNK

REACTIONS (5)
  - Papule [Recovered/Resolved]
  - Eyelid oedema [Recovered/Resolved]
  - Folliculitis [Recovered/Resolved]
  - Aphthous stomatitis [Recovered/Resolved]
  - Neutrophil count increased [Recovered/Resolved]

NARRATIVE: CASE EVENT DATE: 20150216
